FAERS Safety Report 4890807-9 (Version None)
Quarter: 2006Q1

REPORT INFORMATION
  Report Type: 
  Country: None (occurrence: None)
  Receive Date: 20060125
  Receipt Date: 20060110
  Transmission Date: 20060701
  Serious: Yes (Death)
  Sender: FDA-Public Use
  Company Number: NL-NOVOPROD-249944

PATIENT
  Age: 73 Year
  Sex: Female

DRUGS (13)
  1. ACETYLSALICYLIC ACID [Concomitant]
     Dosage: 80 MG, QD
  2. ATROVENT [Concomitant]
     Dosage: 160 UG, QD
     Route: 055
  3. BUMETANIDE [Concomitant]
     Dosage: 1 MG, QD
     Route: 048
  4. SYMBICORT TURBUHALER ^DRACO^ [Concomitant]
     Route: 055
  5. FLUIMICIL [Concomitant]
     Dosage: 1200 MG, QD
     Route: 048
  6. LANOXIN [Concomitant]
     Dosage: .25 MG, QD
     Route: 048
  7. NEWACE [Concomitant]
     Dosage: 20 MG, QD
     Route: 048
  8. NEXIUM [Concomitant]
     Dosage: 40 MG, QD
     Route: 048
  9. OXAZEPAM [Concomitant]
     Dosage: 10 MG, QD
     Route: 048
  10. NORVASC [Concomitant]
     Dosage: 5 MG, QD
     Route: 048
  11. MOVICOLON [Concomitant]
  12. METAMUCIL [Concomitant]
  13. NOVOLOG MIX 70/30 [Suspect]
     Indication: DIABETES MELLITUS
     Dosage: 40 IU, QD
     Route: 058
     Dates: start: 20051011

REACTIONS (1)
  - DEATH [None]
